FAERS Safety Report 12263725 (Version 3)
Quarter: 2017Q2

REPORT INFORMATION
  Report Type: Report from Study
  Country: FR (occurrence: FR)
  Receive Date: 20160413
  Receipt Date: 20170524
  Transmission Date: 20170830
  Serious: Yes (Hospitalization)
  Sender: FDA-Public Use
  Company Number: FR-JNJFOC-20160407333

PATIENT
  Age: 57 Year
  Sex: Female
  Weight: 76 kg

DRUGS (1)
  1. SIMPONI [Suspect]
     Active Substance: GOLIMUMAB
     Indication: ANKYLOSING SPONDYLITIS
     Route: 058
     Dates: start: 20151203, end: 20170201

REACTIONS (3)
  - Ankylosing spondylitis [Not Recovered/Not Resolved]
  - Drug dose omission [Unknown]
  - Hospitalisation [Unknown]

NARRATIVE: CASE EVENT DATE: 2016
